FAERS Safety Report 25430468 (Version 1)
Quarter: 2025Q2

REPORT INFORMATION
  Report Type: Spontaneous
  Country: US (occurrence: US)
  Receive Date: 20250612
  Receipt Date: 20250612
  Transmission Date: 20250716
  Serious: Yes (Other)
  Sender: PFIZER
  Company Number: US-PFIZER INC-202500117889

PATIENT
  Sex: Female

DRUGS (1)
  1. EXEMESTANE [Suspect]
     Active Substance: EXEMESTANE
     Indication: Ovarian cancer

REACTIONS (4)
  - Malignant neoplasm progression [Unknown]
  - Ovarian cancer [Unknown]
  - Lymphadenopathy [Unknown]
  - Off label use [Unknown]
